FAERS Safety Report 19928274 (Version 3)
Quarter: 2021Q4

REPORT INFORMATION
  Report Type: Spontaneous
  Country: ES (occurrence: ES)
  Receive Date: 20211007
  Receipt Date: 20211109
  Transmission Date: 20220304
  Serious: Yes (Hospitalization)
  Sender: FDA-Public Use
  Company Number: ES-MLMSERVICE-20210928-3128304-1

PATIENT
  Age: 89 Year
  Sex: Male

DRUGS (15)
  1. ABIRATERONE [Interacting]
     Active Substance: ABIRATERONE
     Indication: Prostate cancer stage IV
     Route: 048
  2. ABIRATERONE [Interacting]
     Active Substance: ABIRATERONE
     Indication: Disease progression
  3. ROSUVASTATIN [Interacting]
     Active Substance: ROSUVASTATIN
     Indication: Dyslipidaemia
  4. DENOSUMAB [Concomitant]
     Active Substance: DENOSUMAB
     Indication: Metastases to bone
  5. PREDNISONE [Concomitant]
     Active Substance: PREDNISONE
     Indication: Disease progression
  6. TRIPTORELIN [Concomitant]
     Active Substance: TRIPTORELIN
     Indication: Metastases to bone
  7. CETIRIZINE [Concomitant]
     Active Substance: CETIRIZINE HYDROCHLORIDE
     Indication: Product used for unknown indication
  8. ASPIRIN [Concomitant]
     Active Substance: ASPIRIN
     Indication: Aortic stenosis
  9. BISOPROLOL [Concomitant]
     Active Substance: BISOPROLOL
     Indication: Hypertension
  10. CANDESARTAN [Concomitant]
     Active Substance: CANDESARTAN
     Indication: Hypertension
  11. CALCIFEDIOL [Concomitant]
     Active Substance: CALCIFEDIOL
     Indication: Product used for unknown indication
  12. LEVOTHYROXINE [Concomitant]
     Active Substance: LEVOTHYROXINE
     Indication: Hypothyroidism
  13. HYDROCHLOROTHIAZIDE [Concomitant]
     Active Substance: HYDROCHLOROTHIAZIDE
     Indication: Hypertension
  14. OMEPRAZOLE [Concomitant]
     Active Substance: OMEPRAZOLE
     Indication: Product used for unknown indication
  15. CALCIUM CARBONATE [Concomitant]
     Active Substance: CALCIUM CARBONATE
     Indication: Product used for unknown indication

REACTIONS (4)
  - Drug interaction [Recovered/Resolved]
  - Acute kidney injury [Not Recovered/Not Resolved]
  - Cardiac failure congestive [Unknown]
  - Rhabdomyolysis [Recovered/Resolved]
